FAERS Safety Report 17814830 (Version 2)
Quarter: 2020Q2

REPORT INFORMATION
  Report Type: Spontaneous
  Country: US (occurrence: US)
  Receive Date: 20200522
  Receipt Date: 20200630
  Transmission Date: 20200714
  Serious: Yes (Death)
  Sender: FDA-Public Use
  Company Number: US-ROCHE-2605192

PATIENT
  Age: 76 Year
  Sex: Male

DRUGS (5)
  1. CIMZIA [Concomitant]
     Active Substance: CERTOLIZUMAB PEGOL
  2. ELIQUIS [Concomitant]
     Active Substance: APIXABAN
  3. BABY ASPIRIN [Concomitant]
     Active Substance: ASPIRIN
  4. COREG [Concomitant]
     Active Substance: CARVEDILOL
     Route: 065
  5. ESBRIET [Suspect]
     Active Substance: PIRFENIDONE
     Indication: IDIOPATHIC PULMONARY FIBROSIS
     Route: 048
     Dates: start: 20160405

REACTIONS (2)
  - Intestinal ischaemia [Fatal]
  - Atrial fibrillation [Fatal]

NARRATIVE: CASE EVENT DATE: 20200506
